FAERS Safety Report 5059857-6 (Version None)
Quarter: 2006Q3

REPORT INFORMATION
  Report Type: 
  Country: None (occurrence: None)
  Receive Date: 20060724
  Receipt Date: 20060710
  Transmission Date: 20061208
  Serious: Yes (Hospitalization)
  Sender: FDA-Public Use
  Company Number: US-JNJFOC-20060401324

PATIENT
  Sex: Female
  Weight: 67.81 kg

DRUGS (6)
  1. ORTHO EVRA [Suspect]
     Indication: CONTRACEPTION
     Route: 062
  2. LISINOPRIL [Concomitant]
     Route: 048
  3. PLAVIX [Concomitant]
     Route: 048
  4. HABITROL [Concomitant]
     Indication: SMOKING CESSATION THERAPY
     Route: 062
  5. TOPROL-XL [Concomitant]
     Route: 048
  6. LOVASTATIN [Concomitant]
     Indication: HYPERLIPIDAEMIA
     Route: 048

REACTIONS (16)
  - ACUTE MYOCARDIAL INFARCTION [None]
  - CARDIAC ARREST [None]
  - CHEST PAIN [None]
  - CORONARY ARTERY THROMBOSIS [None]
  - DRUG LEVEL DECREASED [None]
  - DRUG SCREEN POSITIVE [None]
  - HYPOXIC ENCEPHALOPATHY [None]
  - INFECTION [None]
  - INTRACARDIAC THROMBUS [None]
  - LOSS OF CONSCIOUSNESS [None]
  - MITRAL VALVE DISEASE [None]
  - MUSCLE CONTRACTIONS INVOLUNTARY [None]
  - ROAD TRAFFIC ACCIDENT [None]
  - TONIC CONVULSION [None]
  - VENOUS THROMBOSIS LIMB [None]
  - VENTRICULAR FIBRILLATION [None]
